FAERS Safety Report 7631331-X (Version None)
Quarter: 2011Q3

REPORT INFORMATION
  Report Type: 
  Country: None (occurrence: None)
  Receive Date: 20110725
  Receipt Date: 20110708
  Transmission Date: 20111222
  Serious: Yes (Life-Threatening, Hospitalization)
  Sender: FDA-Public Use
  Company Number: JP-BAYER-2011-048079

PATIENT
  Age: 63 Year
  Sex: Male
  Weight: 44 kg

DRUGS (4)
  1. MONOCLONAL ANTIBODIES [Suspect]
     Indication: HEPATIC NEOPLASM MALIGNANT
     Dosage: 275 MG, OW
     Route: 042
     Dates: start: 20110517, end: 20110517
  2. SORAFENIB (RAF KINASE INHIBITOR) [Suspect]
     Indication: HEPATIC NEOPLASM MALIGNANT
     Dosage: 400 MG, BID
     Route: 048
     Dates: start: 20110517, end: 20110517
  3. MONOCLONAL ANTIBODIES [Suspect]
     Dosage: 92 MG, OW
     Route: 042
     Dates: start: 20110527, end: 20110527
  4. SORAFENIB (RAF KINASE INHIBITOR) [Suspect]
     Dosage: 400 MG, QD
     Route: 048
     Dates: start: 20110531, end: 20110531

REACTIONS (2)
  - TUMOUR LYSIS SYNDROME [None]
  - RHABDOMYOLYSIS [None]
